FAERS Safety Report 4864125-9 (Version None)
Quarter: 2005Q4

REPORT INFORMATION
  Report Type: 
  Country: None (occurrence: None)
  Receive Date: 20051222
  Receipt Date: 20051122
  Transmission Date: 20060501
  Serious: Yes (Other)
  Sender: FDA-Public Use
  Company Number: GB-GLAXOSMITHKLINE-B0401306A

PATIENT
  Age: 60 Year
  Sex: Female
  Weight: 50 kg

DRUGS (9)
  1. ZANTAC [Suspect]
     Indication: PROPHYLAXIS
     Dosage: 50MG THREE TIMES PER DAY
     Route: 042
     Dates: start: 20051122, end: 20051122
  2. ASPIRIN [Concomitant]
     Dosage: 75MG PER DAY
     Route: 048
     Dates: start: 20051120
  3. CEFTAZIDIME [Concomitant]
     Dosage: 1G TWICE PER DAY
     Route: 042
     Dates: start: 20051121
  4. L-THYROXINE [Concomitant]
     Dosage: 100MG PER DAY
     Route: 048
     Dates: start: 20051120
  5. SIMVASTATIN [Concomitant]
     Dosage: 40MG AT NIGHT
     Route: 048
     Dates: start: 20051121
  6. DALTEPARIN [Concomitant]
     Dosage: 5000IU TWICE PER DAY
     Route: 058
     Dates: start: 20051120
  7. GTN-S [Concomitant]
     Route: 042
     Dates: start: 20051120
  8. MIDAZOLAM [Concomitant]
     Route: 042
     Dates: start: 20051120
  9. ADRENALINE [Concomitant]
     Route: 042
     Dates: start: 20051120

REACTIONS (1)
  - ELECTROCARDIOGRAM QT PROLONGED [None]
